FAERS Safety Report 5197269-5 (Version None)
Quarter: 2006Q4

REPORT INFORMATION
  Report Type: 
  Country: None (occurrence: None)
  Receive Date: 20061228
  Receipt Date: 20061219
  Transmission Date: 20070319
  Serious: Yes (Other)
  Sender: FDA-Public Use
  Company Number: GXKR2006JP08264

PATIENT
  Age: 57 Year
  Sex: Male

DRUGS (3)
  1. IMIPRAMINE [Suspect]
     Indication: CANCER PAIN
  2. PROCHLORPERAZINE [Suspect]
     Indication: CANCER PAIN
  3. MORPHINE [Concomitant]

REACTIONS (4)
  - HALLUCINATION [None]
  - LABILE BLOOD PRESSURE [None]
  - NEUROLEPTIC MALIGNANT SYNDROME [None]
  - RHABDOMYOLYSIS [None]
